FAERS Safety Report 13383871 (Version 1)
Quarter: 2017Q1

REPORT INFORMATION
  Report Type: Spontaneous
  Country: BR (occurrence: BR)
  Receive Date: 20170329
  Receipt Date: 20170329
  Transmission Date: 20170429
  Serious: Yes (Other)
  Sender: FDA-Public Use
  Company Number: BR-009507513-1703BRA011532

PATIENT
  Age: 56 Year
  Sex: Female
  Weight: 61 kg

DRUGS (5)
  1. OVESTRION [Suspect]
     Active Substance: ESTRIOL
     Indication: HORMONE REPLACEMENT THERAPY
     Dosage: UNK UNK, BIW
     Route: 067
     Dates: start: 201703, end: 20170320
  2. OVESTRION [Suspect]
     Active Substance: ESTRIOL
     Indication: VULVOVAGINAL DRYNESS
  3. CALCIUM D3 [Concomitant]
     Active Substance: CALCIUM\CHOLECALCIFEROL
     Indication: BLOOD CALCIUM
     Route: 048
  4. SIMVASTAMED [Concomitant]
     Indication: BLOOD CHOLESTEROL ABNORMAL
     Route: 048
  5. CLONAZEPAM. [Concomitant]
     Active Substance: CLONAZEPAM
     Indication: SLEEP DISORDER THERAPY
     Dosage: STRENGTH REPORTED AS 2 M
     Route: 048

REACTIONS (4)
  - Discomfort [Recovered/Resolved]
  - Vaginal haemorrhage [Recovered/Resolved]
  - Device difficult to use [Unknown]
  - Vulvovaginal injury [Recovered/Resolved]

NARRATIVE: CASE EVENT DATE: 201703
